FAERS Safety Report 6148238-X (Version None)
Quarter: 2009Q2

REPORT INFORMATION
  Report Type: 
  Country: None (occurrence: None)
  Receive Date: 20090408
  Receipt Date: 20080512
  Transmission Date: 20091009
  Serious: Yes (Hospitalization)
  Sender: FDA-Public Use
  Company Number: JP-PFIZER INC-2008037201

PATIENT

DRUGS (8)
  1. SUNITINIB MALATE [Suspect]
     Indication: GASTRIC CANCER
     Dosage: 25 MG, 1X/DAY
     Route: 048
     Dates: start: 20080404, end: 20080421
  2. *TS-1 [Suspect]
     Indication: GASTRIC CANCER
     Dosage: 60 MG, 2X/DAY (TDD120MG)
     Dates: start: 20080403, end: 20080421
  3. CISPLATIN [Suspect]
     Indication: GASTRIC CANCER
     Dosage: 100 MG, ONCE PER CYCLE, (TDD100MG)
     Route: 042
     Dates: start: 20080403, end: 20080403
  4. NIFEDIPINE [Concomitant]
     Dosage: 40 MG, DAILY
     Route: 048
     Dates: end: 20080425
  5. ISOSORBIDE DINITRATE [Concomitant]
     Dosage: 40 MG, DAILY
     Route: 061
  6. CEFCAPENE PIVOXIL HYDROCHLORIDE [Concomitant]
     Dosage: 300 MG, DAILY
     Route: 048
     Dates: start: 20080420, end: 20080425
  7. REBAMIPIDE [Concomitant]
     Dosage: 300 MG, DAILY
     Route: 048
     Dates: start: 20080421, end: 20080425
  8. ACETAMINOPHEN [Concomitant]
     Dosage: 600 MG, DAILY
     Route: 048
     Dates: start: 20080421, end: 20080425

REACTIONS (3)
  - CHOLECYSTITIS [None]
  - GASTROINTESTINAL HAEMORRHAGE [None]
  - PLATELET COUNT DECREASED [None]
